FAERS Safety Report 10005815 (Version 3)
Quarter: 2014Q2

REPORT INFORMATION
  Report Type: Report from Study
  Country: JP (occurrence: JP)
  Receive Date: 20140313
  Receipt Date: 20140518
  Transmission Date: 20141212
  Serious: Yes (Other)
  Sender: FDA-Public Use
  Company Number: JP-ROCHE-1360795

PATIENT
  Age: 77 Year
  Sex: Male

DRUGS (21)
  1. METHOXY POLYETHYLENE GLYCOL-EPOETIN BETA [Suspect]
     Indication: NEPHROGENIC ANAEMIA
     Route: 065
     Dates: start: 20140103
  2. ARTIST [Concomitant]
     Dosage: DOSAGE IS UNCERTAIN.
     Route: 065
  3. ALLEGRA [Concomitant]
     Dosage: DOSAGE IS UNCERTAIN.
     Route: 065
  4. EPOETIN ALFA [Concomitant]
     Dosage: DOSAGE IS UNCERTAIN.
     Route: 065
  5. CALTAN [Concomitant]
     Dosage: DOSAGE IS UNCERTAIN.
     Route: 065
  6. CARDENALIN [Concomitant]
     Dosage: DOSAGE IS UNCERTAIN.
     Route: 065
  7. CALBLOCK [Concomitant]
     Dosage: DOSAGE IS UNCERTAIN.
     Route: 065
  8. TOUGHMAC E [Concomitant]
     Dosage: DOSAGE IS UNCERTAIN.
     Route: 065
  9. NEO-MINOPHAGEN C [Concomitant]
     Dosage: DOSAGE IS UNCERTAIN.
     Route: 065
  10. NESINA [Concomitant]
     Dosage: DOSAGE IS UNCERTAIN.
     Route: 065
  11. PANALDINE [Concomitant]
     Dosage: DOSAGE IS UNCERTAIN.
     Route: 065
  12. PARIET [Concomitant]
     Dosage: DOSAGE IS UNCERTAIN.
     Route: 065
  13. PALUX [Concomitant]
     Dosage: DOSAGE IS UNCERTAIN.
     Route: 065
  14. FRANDOL [Concomitant]
     Dosage: DOSAGE IS UNCERTAIN.
     Route: 062
  15. FALECALCITRIOL [Concomitant]
     Dosage: DOSAGE IS UNCERTAIN.
     Route: 065
  16. PREDONINE [Concomitant]
     Dosage: DOSAGE IS UNCERTAIN.
     Route: 065
  17. PERSANTIN [Concomitant]
     Dosage: DOSAGE IS UNCERTAIN.
     Route: 065
  18. HERBESSER [Concomitant]
     Dosage: DOSAGE IS UNCERTAIN.
     Route: 065
  19. MICARDIS [Concomitant]
     Dosage: DOSAGE IS UNCERTAIN.
     Route: 065
  20. MUCOSTA [Concomitant]
     Dosage: DOSAGE IS UNCERTAIN.
     Route: 065
  21. LASIX [Concomitant]
     Dosage: DOSAGE IS UNCERTAIN.
     Route: 065

REACTIONS (1)
  - Haemoglobin decreased [Unknown]
